FAERS Safety Report 13201360 (Version 1)
Quarter: 2017Q1

REPORT INFORMATION
  Report Type: Other
  Country: TR (occurrence: TR)
  Receive Date: 20170209
  Receipt Date: 20170209
  Transmission Date: 20170428
  Serious: Yes (Other)
  Sender: FDA-Public Use
  Company Number: TR-ORCHID HEALTHCARE-1062908

PATIENT
  Age: 13 Year
  Sex: Female

DRUGS (1)
  1. DIVALPROEX SODIUM. [Suspect]
     Active Substance: DIVALPROEX SODIUM
     Indication: EPILEPSY
     Route: 048

REACTIONS (3)
  - Haemarthrosis [Recovered/Resolved]
  - Hypofibrinogenaemia [Recovered/Resolved]
  - Menometrorrhagia [Unknown]
